FAERS Safety Report 21555234 (Version 1)
Quarter: 2022Q4

REPORT INFORMATION
  Report Type: Spontaneous
  Country: CA (occurrence: CA)
  Receive Date: 20221104
  Receipt Date: 20221104
  Transmission Date: 20230112
  Serious: Yes (Other)
  Sender: FDA-Public Use
  Company Number: None

PATIENT

DRUGS (1)
  1. MANNITOL [Suspect]
     Active Substance: MANNITOL
     Indication: Product used for unknown indication
     Route: 065

REACTIONS (5)
  - Abdominal distension [Unknown]
  - Drug hypersensitivity [Unknown]
  - Gastric haemorrhage [Unknown]
  - Malaise [Unknown]
  - Muscle spasms [Unknown]
